FAERS Safety Report 5080176-6 (Version None)
Quarter: 2006Q3

REPORT INFORMATION
  Report Type: 
  Country: None (occurrence: None)
  Receive Date: 20060810
  Receipt Date: 20060726
  Transmission Date: 20061208
  Serious: Yes (Other)
  Sender: FDA-Public Use
  Company Number: US200511001316

PATIENT
  Age: 44 Year
  Sex: Female
  Weight: 104.3 kg

DRUGS (4)
  1. ZYPREXA [Suspect]
     Indication: ANXIETY
     Dosage: 5 MG; SEE IMAGE
     Dates: start: 19970917, end: 20000128
  2. SEROQUEL /UNK/ (QUETIAPINE FUMARATE) [Concomitant]
  3. THORAZINE [Concomitant]
  4. DEPAKOTE [Concomitant]

REACTIONS (10)
  - BLOOD CHOLESTEROL ABNORMAL [None]
  - BLOOD TRIGLYCERIDES INCREASED [None]
  - DIABETES MELLITUS NON-INSULIN-DEPENDENT [None]
  - GLYCOSURIA [None]
  - HEPATITIS C [None]
  - HYPERGLYCAEMIA [None]
  - HYPOGLYCAEMIA [None]
  - INSULIN RESISTANCE [None]
  - VISION BLURRED [None]
  - WEIGHT INCREASED [None]
